FAERS Safety Report 7775097-1 (Version None)
Quarter: 2011Q3

REPORT INFORMATION
  Report Type: 
  Country: None (occurrence: None)
  Receive Date: 20110923
  Receipt Date: 20110908
  Transmission Date: 20111222
  Serious: Yes (Other)
  Sender: FDA-Public Use
  Company Number: GB-WATSON-2011-14651

PATIENT
  Age: 58 Year
  Sex: Female
  Weight: 117 kg

DRUGS (5)
  1. DICLOFENAC [Concomitant]
     Indication: PRODUCT USED FOR UNKNOWN INDICATION
     Dosage: 50 MG, TID
     Route: 065
     Dates: start: 20021105
  2. LANSOPRAZOLE [Concomitant]
     Indication: PRODUCT USED FOR UNKNOWN INDICATION
     Dosage: 30 MG, DAILY
     Route: 065
     Dates: start: 20021105
  3. TERBINAFINE HCL [Suspect]
     Indication: FUNGAL INFECTION
     Dosage: 250 MG, DAILY
     Route: 048
     Dates: start: 20100906, end: 20100920
  4. ALLOPURINOL [Concomitant]
     Indication: PRODUCT USED FOR UNKNOWN INDICATION
     Dosage: 300 MG, BID
     Route: 048
     Dates: start: 20021105
  5. HYDROXYUREA [Concomitant]
     Indication: MYELOPROLIFERATIVE DISORDER
     Dosage: 1.5 MG, DAILY
     Route: 048
     Dates: start: 20021105

REACTIONS (3)
  - NAUSEA [None]
  - CHROMATURIA [None]
  - JAUNDICE [None]
